FAERS Safety Report 7365006-1 (Version None)
Quarter: 2011Q1

REPORT INFORMATION
  Report Type: 
  Country: None (occurrence: None)
  Receive Date: 20110321
  Receipt Date: 20080818
  Transmission Date: 20110831
  Serious: Yes (Other)
  Sender: FDA-Public Use
  Company Number: FR-CELGENEUS-056-20785-10102489

PATIENT
  Age: 74 Year
  Sex: Female

DRUGS (6)
  1. THALIDOMIDE [Suspect]
     Dosage: 300 MILLIGRAM
     Route: 048
     Dates: start: 20001015
  2. THALIDOMIDE [Suspect]
     Indication: MULTIPLE MYELOMA
     Dosage: 200 MILLIGRAM
     Route: 048
     Dates: start: 20000915, end: 20001015
  3. THALIDOMIDE [Suspect]
     Dosage: 100 MILLIGRAM
     Route: 048
     Dates: start: 20021115, end: 20030115
  4. ASPIRIN [Concomitant]
     Indication: THROMBOSIS PROPHYLAXIS
     Route: 065
  5. THALIDOMIDE [Suspect]
     Dosage: 400 MILLIGRAM
     Route: 048
     Dates: end: 20010515
  6. BISPHOSPHONATE [Concomitant]
     Route: 065

REACTIONS (1)
  - CARDIOTOXICITY [None]
